FAERS Safety Report 9647904 (Version 2)
Quarter: 2013Q4

REPORT INFORMATION
  Report Type: Spontaneous
  Country: US (occurrence: US)
  Receive Date: 20131028
  Receipt Date: 20131028
  Transmission Date: 20140711
  Serious: No
  Sender: FDA-Public Use
  Company Number: US-PFIZER INC-2013251336

PATIENT
  Age: 50 Year
  Sex: Female

DRUGS (2)
  1. AROMASIN [Suspect]
     Indication: BREAST CANCER
     Dosage: 25 MG, 1X/DAY
     Route: 048
     Dates: start: 20120201, end: 20120308
  2. AROMASIN [Suspect]
     Dosage: UNK
     Dates: start: 20130326

REACTIONS (1)
  - Alopecia [Recovered/Resolved]
